FAERS Safety Report 20378968 (Version 1)
Quarter: 2022Q1

REPORT INFORMATION
  Report Type: Spontaneous
  Country: US (occurrence: None)
  Receive Date: 20220125
  Receipt Date: 20220125
  Transmission Date: 20220423
  Serious: No
  Sender: FDA-Public Use
  Company Number: None

PATIENT
  Age: 62 Year
  Sex: Female
  Weight: 66.6 kg

DRUGS (2)
  1. MYRBETRIQ [Suspect]
     Active Substance: MIRABEGRON
     Indication: Hypertonic bladder
     Dosage: OTHER QUANTITY : 1 TABLET(S);?FREQUENCY : DAILY;?
     Route: 048
     Dates: start: 20211228, end: 20220109
  2. SYNTHROID [Concomitant]
     Active Substance: LEVOTHYROXINE SODIUM

REACTIONS (13)
  - Malaise [None]
  - Headache [None]
  - Feeling hot [None]
  - Back pain [None]
  - Dizziness [None]
  - Varicophlebitis [None]
  - Decreased appetite [None]
  - Arthralgia [None]
  - Vision blurred [None]
  - Fatigue [None]
  - Memory impairment [None]
  - Dyspnoea [None]
  - Anxiety [None]

NARRATIVE: CASE EVENT DATE: 20220109
